FAERS Safety Report 7811646-2 (Version None)
Quarter: 2011Q4

REPORT INFORMATION
  Report Type: 
  Country: None (occurrence: None)
  Receive Date: 20111013
  Receipt Date: 20110721
  Transmission Date: 20120403
  Serious: No
  Sender: FDA-Public Use
  Company Number: US-NOVEN-11US002832

PATIENT
  Age: 37 Year
  Sex: Female

DRUGS (1)
  1. FENTANYL [Suspect]
     Indication: PAIN
     Dosage: 25UG/HR, UNK
     Route: 062

REACTIONS (2)
  - PRODUCT QUALITY ISSUE [None]
  - INADEQUATE ANALGESIA [None]
